FAERS Safety Report 14171389 (Version 1)
Quarter: 2017Q4

REPORT INFORMATION
  Report Type: Spontaneous
  Country: GB (occurrence: GB)
  Receive Date: 20171108
  Receipt Date: 20171108
  Transmission Date: 20180321
  Serious: Yes (Hospitalization)
  Sender: FDA-Public Use
  Company Number: GB-PFIZER INC-2017478875

PATIENT
  Age: 47 Year
  Sex: Male
  Weight: 67.5 kg

DRUGS (2)
  1. TIGECYCLINE. [Suspect]
     Active Substance: TIGECYCLINE
     Indication: DECUBITUS ULCER
     Dosage: 100 MG, SINGLE (AS SINGLE DOSE)
     Route: 042
     Dates: start: 20171005, end: 20171005
  2. TIGECYCLINE. [Suspect]
     Active Substance: TIGECYCLINE
     Dosage: 50 MG, 2X/DAY
     Route: 042
     Dates: start: 20171006, end: 20171012

REACTIONS (4)
  - Malaise [Unknown]
  - Confusional state [Unknown]
  - Unresponsive to stimuli [Unknown]
  - Pancreatitis acute [Recovering/Resolving]

NARRATIVE: CASE EVENT DATE: 20171012
